FAERS Safety Report 6467512-0 (Version None)
Quarter: 2009Q4

REPORT INFORMATION
  Report Type: 
  Country: None (occurrence: None)
  Receive Date: 20091202
  Receipt Date: 20091123
  Transmission Date: 20100525
  Serious: Yes (Other)
  Sender: FDA-Public Use
  Company Number: CHPA2009US22490

PATIENT

DRUGS (3)
  1. ACETYLSALICYLIC ACID SRT [Suspect]
     Dosage: UNK, UNK
  2. OMEGA-3 FATTY ACIDS [Suspect]
     Dosage: UNK, UNK
  3. CLOPIDOGREL [Suspect]
     Dosage: UNK, UNK

REACTIONS (3)
  - RECTAL CANCER [None]
  - RECTAL HAEMORRHAGE [None]
  - TRANSFUSION [None]
